FAERS Safety Report 5326600-2 (Version None)
Quarter: 2007Q2

REPORT INFORMATION
  Report Type: 
  Country: None (occurrence: None)
  Receive Date: 20070516
  Receipt Date: 20070507
  Transmission Date: 20071010
  Serious: Yes (Other)
  Sender: FDA-Public Use
  Company Number: US-PFIZER INC-2007036679

PATIENT
  Sex: Female
  Weight: 73 kg

DRUGS (4)
  1. XALATAN [Suspect]
     Indication: GLAUCOMA
     Route: 047
  2. SYNTHROID [Concomitant]
  3. VITAMINS [Concomitant]
  4. HERBAL PREPARATION [Concomitant]

REACTIONS (2)
  - CAUTERY TO NOSE [None]
  - EPISTAXIS [None]
